FAERS Safety Report 8417981-1 (Version None)
Quarter: 2012Q2

REPORT INFORMATION
  Report Type: 
  Country: None (occurrence: None)
  Receive Date: 20120607
  Receipt Date: 20120525
  Transmission Date: 20120825
  Serious: Yes (Hospitalization, Disabling)
  Sender: FDA-Public Use
  Company Number: US-JNJFOC-20120506445

PATIENT
  Sex: Male
  Weight: 94.8 kg

DRUGS (3)
  1. REMICADE [Suspect]
     Route: 042
     Dates: start: 20120111, end: 20120111
  2. REMICADE [Suspect]
     Route: 042
     Dates: start: 20111118
  3. REMICADE [Suspect]
     Indication: CROHN'S DISEASE
     Route: 042
     Dates: start: 20110926

REACTIONS (10)
  - ABASIA [None]
  - LYMPHADENOPATHY [None]
  - MYALGIA [None]
  - OROPHARYNGEAL PAIN [None]
  - OEDEMA PERIPHERAL [None]
  - INFUSION RELATED REACTION [None]
  - MUSCULAR WEAKNESS [None]
  - STOMATITIS [None]
  - ARTHRALGIA [None]
  - FINGER DEFORMITY [None]
